FAERS Safety Report 20120253 (Version 1)
Quarter: 2021Q4

REPORT INFORMATION
  Report Type: Spontaneous
  Country: US (occurrence: None)
  Receive Date: 20211126
  Receipt Date: 20211126
  Transmission Date: 20220303
  Serious: Yes (Hospitalization)
  Sender: FDA-Public Use
  Company Number: None

PATIENT
  Age: 77 Year
  Sex: Female

DRUGS (14)
  1. TOBI [Suspect]
     Active Substance: TOBRAMYCIN
     Indication: Pseudomonas infection
     Dosage: FREQUENCY : TWICE A DAY;?
     Route: 055
     Dates: start: 20210611
  2. AMOXICILLIN [Concomitant]
     Active Substance: AMOXICILLIN
  3. BISOPROLOL FUMARATE [Concomitant]
     Active Substance: BISOPROLOL FUMARATE
  4. BUDESONIDE [Concomitant]
     Active Substance: BUDESONIDE
  5. BYSTOLIC [Concomitant]
     Active Substance: NEBIVOLOL HYDROCHLORIDE
  6. CLONIDINE [Concomitant]
     Active Substance: CLONIDINE
  7. Dilatiazem [Concomitant]
  8. ELIQUIS [Concomitant]
     Active Substance: APIXABAN
  9. FLECAINIDE [Concomitant]
     Active Substance: FLECAINIDE
  10. ALBUTEROL\IPRATROPIUM [Concomitant]
     Active Substance: ALBUTEROL\IPRATROPIUM
  11. LEVALBUTEROL [Concomitant]
     Active Substance: LEVALBUTEROL
  12. MI-ACID [Concomitant]
  13. One Daily [Concomitant]
  14. VALSARTAN [Concomitant]
     Active Substance: VALSARTAN

REACTIONS (1)
  - Pneumonia [None]

NARRATIVE: CASE EVENT DATE: 20211119
